FAERS Safety Report 8369528-6 (Version None)
Quarter: 2012Q2

REPORT INFORMATION
  Report Type: 
  Country: None (occurrence: None)
  Receive Date: 20120517
  Receipt Date: 20120517
  Transmission Date: 20120825
  Serious: Yes (Other)
  Sender: FDA-Public Use
  Company Number: None

PATIENT
  Sex: Female
  Weight: 63.5036 kg

DRUGS (1)
  1. LISINOPRIL AND HYDROCHLOROTHIAZIDE [Suspect]
     Indication: HYPERTENSION
     Dosage: 10/12.5 DAILY BY MOUTH
     Route: 048
     Dates: start: 20120417, end: 20120418

REACTIONS (2)
  - INFLUENZA LIKE ILLNESS [None]
  - TACHYCARDIA [None]
